FAERS Safety Report 5037006-8 (Version None)
Quarter: 2006Q2

REPORT INFORMATION
  Report Type: 
  Country: None (occurrence: None)
  Receive Date: 20060601
  Receipt Date: 20060420
  Transmission Date: 20061013
  Serious: Yes (Hospitalization)
  Sender: FDA-Public Use
  Company Number: US200602002486

PATIENT
  Age: 71 Year
  Sex: Female

DRUGS (3)
  1. CYMBALTA [Suspect]
     Indication: NEURALGIA
     Dosage: 60 MG
     Dates: end: 20060101
  2. CYMBALTA [Suspect]
     Indication: NEURALGIA
     Dosage: 60 MG
     Dates: start: 20060101
  3. ORAL ANTIDIABETICS [Concomitant]

REACTIONS (2)
  - HYPOGLYCAEMIA [None]
  - MALAISE [None]
